FAERS Safety Report 9257417 (Version 1)
Quarter: 2013Q1

REPORT INFORMATION
  Report Type: Spontaneous
  Country: US (occurrence: None)
  Receive Date: 20121212
  Receipt Date: 20121212
  Transmission Date: 20140127
  Serious: No
  Sender: FDA-Public Use
  Company Number: 2012SP034769

PATIENT
  Age: 57 Year
  Sex: Male
  Weight: 70.31 kg

DRUGS (4)
  1. VICTRELIS  (BOCEPREVIR) [Suspect]
     Route: 048
  2. PEGASYS  (PEGINTERFERON ALFA-2A) [Suspect]
     Dosage: 180MCG/0.5ML, EVERY WEEK, SUBCUTANEOUS
     Route: 058
  3. RIBAPAK  (RIBAVIRIN) [Suspect]
     Indication: PRODUCT USED FOR UNKNOWN INDICATION
     Dosage: 1000, QD, ORAL
     Route: 048
  4. LISINOPRIL (LISINOPRIL) TABLET [Concomitant]

REACTIONS (12)
  - Influenza [None]
  - Influenza like illness [None]
  - Headache [None]
  - Cough [None]
  - Pyrexia [None]
  - Pain in extremity [None]
  - Pain in extremity [None]
  - Dysgeusia [None]
  - Asthenia [None]
  - Dry mouth [None]
  - Fatigue [None]
  - Fatigue [None]
